FAERS Safety Report 6402372-5 (Version None)
Quarter: 2009Q4

REPORT INFORMATION
  Report Type: 
  Country: None (occurrence: None)
  Receive Date: 20091015
  Receipt Date: 20091001
  Transmission Date: 20100525
  Serious: Yes (Death, Other)
  Sender: FDA-Public Use
  Company Number: GB-PFIZER INC-2009251816

PATIENT
  Age: 35 Year

DRUGS (2)
  1. ZYVOX [Suspect]
     Indication: STAPHYLOCOCCAL INFECTION
  2. MEROPENEM [Concomitant]
     Indication: STAPHYLOCOCCAL INFECTION

REACTIONS (2)
  - INFLUENZA [None]
  - PNEUMONIA [None]
